FAERS Safety Report 8497992-0 (Version None)
Quarter: 2012Q3

REPORT INFORMATION
  Report Type: 
  Country: None (occurrence: None)
  Receive Date: 20120709
  Receipt Date: 20120618
  Transmission Date: 20120928
  Serious: No
  Sender: FDA-Public Use
  Company Number: US-AMGEN-USASP2012037771

PATIENT
  Age: 57 Year
  Sex: Male

DRUGS (1)
  1. ENBREL [Suspect]
     Indication: PSORIATIC ARTHROPATHY
     Dosage: 25 MG, QWK
     Dates: start: 20000101

REACTIONS (6)
  - SINUSITIS [None]
  - OBSESSIVE-COMPULSIVE DISORDER [None]
  - OPEN WOUND [None]
  - DERMATILLOMANIA [None]
  - PRURITUS [None]
  - IMPAIRED HEALING [None]
